FAERS Safety Report 11946512 (Version 2)
Quarter: 2016Q1

REPORT INFORMATION
  Report Type: Spontaneous
  Country: US (occurrence: US)
  Receive Date: 20160125
  Receipt Date: 20160304
  Transmission Date: 20160526
  Serious: No
  Sender: FDA-Public Use
  Company Number: US-JNJFOC-20160108284

PATIENT
  Age: 78 Year
  Sex: Female
  Weight: 68.04 kg

DRUGS (3)
  1. MENS ROGAINE EXTRA STRENGTH [Suspect]
     Active Substance: MINOXIDIL
     Indication: HAIR GROWTH ABNORMAL
     Dosage: APPLIED LIBERALLY, ONE OR TWO TIMES PER DAY, FOR APPROXIMATELY FOUR MONTHS
     Route: 061
     Dates: start: 201509
  2. URSODIOL. [Concomitant]
     Active Substance: URSODIOL
     Indication: CREST SYNDROME
     Dosage: 4 TAB (250MG), 2013-2014
     Route: 065
  3. MENS ROGAINE EXTRA STRENGTH [Suspect]
     Active Substance: MINOXIDIL
     Route: 061

REACTIONS (2)
  - Drug prescribing error [Unknown]
  - Off label use [Unknown]
